FAERS Safety Report 13503155 (Version 2)
Quarter: 2017Q3

REPORT INFORMATION
  Report Type: Spontaneous
  Country: CA (occurrence: CA)
  Receive Date: 20170502
  Receipt Date: 20170706
  Transmission Date: 20171127
  Serious: Yes (Death, Other)
  Sender: FDA-Public Use
  Company Number: CA-SA-2017SA077122

PATIENT
  Sex: Female

DRUGS (41)
  1. AMPICILLIN [Suspect]
     Active Substance: AMPICILLIN
     Indication: ANTIBIOTIC THERAPY
     Route: 042
  2. LEVOFLOXACIN. [Suspect]
     Active Substance: LEVOFLOXACIN
     Indication: STENOTROPHOMONAS INFECTION
     Route: 048
  3. TRIMETHOPRIM/SULFAMETHOXAZOLE [Suspect]
     Active Substance: SULFAMETHOXAZOLE\TRIMETHOPRIM
     Indication: STENOTROPHOMONAS INFECTION
     Route: 065
  4. CEFOTAXIME [Suspect]
     Active Substance: CEFOTAXIME SODIUM
     Indication: RENAL FAILURE
     Route: 042
  5. CEFOTAXIME [Suspect]
     Active Substance: CEFOTAXIME SODIUM
     Indication: ANTIBIOTIC THERAPY
     Route: 042
  6. VANCOMYCIN [Suspect]
     Active Substance: VANCOMYCIN
     Indication: FOETAL EXPOSURE TIMING UNSPECIFIED
     Route: 064
  7. CEFOTAXIME [Suspect]
     Active Substance: CEFOTAXIME SODIUM
     Indication: ANTIBIOTIC THERAPY
     Route: 042
  8. CEFOTAXIME [Suspect]
     Active Substance: CEFOTAXIME SODIUM
     Indication: FOETAL EXPOSURE TIMING UNSPECIFIED
     Route: 042
  9. CEFOTAXIME [Suspect]
     Active Substance: CEFOTAXIME SODIUM
     Indication: RENAL FAILURE
     Route: 042
  10. CEFOTAXIME [Suspect]
     Active Substance: CEFOTAXIME SODIUM
     Indication: EVIDENCE BASED TREATMENT
     Route: 042
  11. LEVOFLOXACIN. [Suspect]
     Active Substance: LEVOFLOXACIN
     Indication: STENOTROPHOMONAS INFECTION
     Route: 048
  12. TRIMETHOPRIM/SULFAMETHOXAZOLE [Suspect]
     Active Substance: SULFAMETHOXAZOLE\TRIMETHOPRIM
     Indication: STENOTROPHOMONAS INFECTION
     Route: 065
  13. VANCOMYCIN [Suspect]
     Active Substance: VANCOMYCIN
     Indication: EVIDENCE BASED TREATMENT
     Route: 064
  14. AMPICILLIN [Suspect]
     Active Substance: AMPICILLIN
     Indication: FOETAL EXPOSURE TIMING UNSPECIFIED
     Route: 042
  15. GENTAMICIN. [Suspect]
     Active Substance: GENTAMICIN
     Indication: EVIDENCE BASED TREATMENT
     Dosage: FORM- IV SOLUTION?STRENGTH- 80 MG LIQ IV 1.6 MG/ML
     Route: 042
  16. MEROPENEM. [Suspect]
     Active Substance: MEROPENEM
     Indication: FOETAL EXPOSURE TIMING UNSPECIFIED
     Dosage: FORM- POWDER FOR SOLUTION INTRAVENOUS
     Route: 042
  17. TRIMETHOPRIM/SULFAMETHOXAZOLE [Suspect]
     Active Substance: SULFAMETHOXAZOLE\TRIMETHOPRIM
     Indication: FOETAL EXPOSURE TIMING UNSPECIFIED
     Route: 065
  18. AMPICILLIN [Suspect]
     Active Substance: AMPICILLIN
     Indication: FOETAL EXPOSURE TIMING UNSPECIFIED
     Route: 064
  19. TRIMETHOPRIM/SULFAMETHOXAZOLE [Suspect]
     Active Substance: SULFAMETHOXAZOLE\TRIMETHOPRIM
     Indication: FOETAL EXPOSURE TIMING UNSPECIFIED
     Route: 065
  20. TRIMETHOPRIM/SULFAMETHOXAZOLE [Suspect]
     Active Substance: SULFAMETHOXAZOLE\TRIMETHOPRIM
     Indication: FOETAL EXPOSURE TIMING UNSPECIFIED
     Route: 065
  21. CEFOTAXIME [Suspect]
     Active Substance: CEFOTAXIME SODIUM
     Indication: FOETAL EXPOSURE TIMING UNSPECIFIED
     Route: 042
  22. AMPICILLIN [Suspect]
     Active Substance: AMPICILLIN
     Indication: EVIDENCE BASED TREATMENT
     Route: 042
  23. AMPICILLIN [Suspect]
     Active Substance: AMPICILLIN
     Indication: ANTIBIOTIC THERAPY
     Route: 064
  24. BETAMETHASONE. [Suspect]
     Active Substance: BETAMETHASONE
     Indication: FOETAL EXPOSURE TIMING UNSPECIFIED
     Route: 064
  25. GENTAMICIN. [Suspect]
     Active Substance: GENTAMICIN
     Indication: ANTIBIOTIC THERAPY
     Dosage: FORM- IV SOLUTION?STRENGTH- 80 MG LIQ IV 1.6 MG/ML
     Route: 042
  26. LEVOFLOXACIN. [Suspect]
     Active Substance: LEVOFLOXACIN
     Indication: FOETAL EXPOSURE TIMING UNSPECIFIED
     Route: 048
  27. TRIMETHOPRIM/SULFAMETHOXAZOLE [Suspect]
     Active Substance: SULFAMETHOXAZOLE\TRIMETHOPRIM
     Indication: STENOTROPHOMONAS INFECTION
     Route: 065
  28. TRIMETHOPRIM/SULFAMETHOXAZOLE [Suspect]
     Active Substance: SULFAMETHOXAZOLE\TRIMETHOPRIM
     Indication: STENOTROPHOMONAS INFECTION
     Route: 065
  29. CEFOTAXIME [Suspect]
     Active Substance: CEFOTAXIME SODIUM
     Indication: EVIDENCE BASED TREATMENT
     Route: 042
  30. AMPICILLIN [Suspect]
     Active Substance: AMPICILLIN
     Indication: EVIDENCE BASED TREATMENT
     Route: 064
  31. ERYTHROMYCIN. [Suspect]
     Active Substance: ERYTHROMYCIN
     Indication: FOETAL EXPOSURE TIMING UNSPECIFIED
     Route: 064
  32. GENTAMICIN. [Suspect]
     Active Substance: GENTAMICIN
     Indication: FOETAL EXPOSURE TIMING UNSPECIFIED
     Dosage: FORM- IV SOLUTION?STRENGTH- 80 MG LIQ IV 1.6 MG/ML
     Route: 042
  33. TRIMETHOPRIM/SULFAMETHOXAZOLE [Suspect]
     Active Substance: SULFAMETHOXAZOLE\TRIMETHOPRIM
     Indication: FOETAL EXPOSURE TIMING UNSPECIFIED
     Route: 065
  34. VANCOMYCIN [Suspect]
     Active Substance: VANCOMYCIN
     Indication: ANTIBIOTIC THERAPY
     Route: 064
  35. VANCOMYCIN [Suspect]
     Active Substance: VANCOMYCIN
     Indication: ANTIBIOTIC THERAPY
     Route: 064
  36. LEVOFLOXACIN. [Suspect]
     Active Substance: LEVOFLOXACIN
     Indication: FOETAL EXPOSURE TIMING UNSPECIFIED
     Route: 048
  37. MEROPENEM. [Suspect]
     Active Substance: MEROPENEM
     Indication: RESPIRATORY TRACT INFECTION
     Dosage: FORM- POWDER FOR SOLUTION INTRAVENOUS
     Route: 042
  38. TRIMETHOPRIM/SULFAMETHOXAZOLE [Suspect]
     Active Substance: SULFAMETHOXAZOLE\TRIMETHOPRIM
     Indication: FOETAL EXPOSURE TIMING UNSPECIFIED
     Route: 065
  39. TRIMETHOPRIM/SULFAMETHOXAZOLE [Suspect]
     Active Substance: SULFAMETHOXAZOLE\TRIMETHOPRIM
     Indication: STENOTROPHOMONAS INFECTION
     Route: 065
  40. VANCOMYCIN [Suspect]
     Active Substance: VANCOMYCIN
     Indication: EVIDENCE BASED TREATMENT
     Route: 064
  41. VANCOMYCIN [Suspect]
     Active Substance: VANCOMYCIN
     Indication: FOETAL EXPOSURE TIMING UNSPECIFIED
     Route: 064

REACTIONS (18)
  - Hypotonia [Unknown]
  - Pneumonia [Unknown]
  - Respiratory disorder [Unknown]
  - Neonatal respiratory distress syndrome [None]
  - Stenotrophomonas infection [Unknown]
  - Renal failure neonatal [None]
  - Sepsis neonatal [None]
  - Death neonatal [Fatal]
  - Umbilical erythema [Unknown]
  - Neonatal pneumonia [None]
  - Premature baby [Unknown]
  - Renal failure [Unknown]
  - Hypotonia neonatal [None]
  - Pneumonia bacterial [Unknown]
  - Foetal exposure during pregnancy [Unknown]
  - Exposure during pregnancy [Fatal]
  - Lethargy [Unknown]
  - Sepsis [Unknown]
